FAERS Safety Report 5651263-6 (Version None)
Quarter: 2008Q1

REPORT INFORMATION
  Report Type: 
  Country: None (occurrence: None)
  Receive Date: 20080131
  Receipt Date: 20071031
  Transmission Date: 20080703
  Serious: No
  Sender: FDA-Public Use
  Company Number: US200710003235

PATIENT
  Age: 43 Year
  Sex: Female
  Weight: 79.4 kg

DRUGS (1)
  1. BYETTA [Suspect]
     Indication: INSULIN RESISTANCE
     Dosage: 5 UG, 2/D, SUBCUTANEOUS
     Route: 058
     Dates: start: 20070901

REACTIONS (6)
  - ASTHENIA [None]
  - BLOOD GLUCOSE DECREASED [None]
  - CHEST DISCOMFORT [None]
  - DIZZINESS [None]
  - FEELING JITTERY [None]
  - NERVOUSNESS [None]
